APPROVED DRUG PRODUCT: DOCETAXEL
Active Ingredient: DOCETAXEL
Strength: 80MG/4ML (20MG/ML)
Dosage Form/Route: INJECTABLE;INJECTION
Application: N022234 | Product #005
Applicant: HOSPIRA INC
Approved: Jun 23, 2016 | RLD: Yes | RS: No | Type: RX